FAERS Safety Report 9588990 (Version 1)
Quarter: 2013Q4

REPORT INFORMATION
  Report Type: Spontaneous
  Country: US (occurrence: US)
  Receive Date: 20131003
  Receipt Date: 20131003
  Transmission Date: 20140711
  Serious: No
  Sender: FDA-Public Use
  Company Number: US-AMGEN-USASP2012067079

PATIENT
  Age: 54 Year
  Sex: Female
  Weight: 186 kg

DRUGS (6)
  1. ENBREL [Suspect]
     Indication: ANKYLOSING SPONDYLITIS
     Dosage: 50 MG, QWK
     Route: 058
  2. BRIMONIDINE [Concomitant]
     Indication: GLAUCOMA
  3. LOSARTAN [Concomitant]
     Dosage: 100 MG, UNK
  4. HUMIRA [Concomitant]
     Indication: ANKYLOSING SPONDYLITIS
     Dosage: 40 MG/0.8 UNK
  5. GOODYS BODY PAIN [Concomitant]
     Dosage: UNK
  6. HEARTBURN MD [Concomitant]
     Dosage: 200 MG, UNK

REACTIONS (1)
  - Drug effect incomplete [Unknown]
